FAERS Safety Report 10050547 (Version 1)
Quarter: 2014Q2

REPORT INFORMATION
  Report Type: Spontaneous
  Country: US (occurrence: US)
  Receive Date: 20140401
  Receipt Date: 20140401
  Transmission Date: 20141212
  Serious: No
  Sender: FDA-Public Use
  Company Number: US-ASTRAZENECA-2013SE82678

PATIENT
  Age: 64 Year
  Sex: Female
  Weight: 63.5 kg

DRUGS (3)
  1. NEXIUM [Suspect]
     Indication: GASTROOESOPHAGEAL REFLUX DISEASE
     Route: 048
     Dates: start: 2010
  2. VYTORIN [Concomitant]
     Indication: BLOOD CHOLESTEROL INCREASED
     Dosage: 10- 40 MG DAILY
     Route: 048
     Dates: start: 2010
  3. LOSARTAN [Concomitant]
     Indication: BLOOD PRESSURE
     Route: 048
     Dates: start: 201305

REACTIONS (6)
  - Glucose tolerance impaired [Unknown]
  - Blood cholesterol increased [Unknown]
  - Product coating issue [Unknown]
  - Product packaging quantity issue [Unknown]
  - Circumstance or information capable of leading to medication error [Unknown]
  - Drug ineffective [Unknown]
